FAERS Safety Report 9814426 (Version 2)
Quarter: 2014Q1

REPORT INFORMATION
  Report Type: Spontaneous
  Country: NO (occurrence: NO)
  Receive Date: 20140113
  Receipt Date: 20140204
  Transmission Date: 20141002
  Serious: Yes (Hospitalization)
  Sender: FDA-Public Use
  Company Number: PHHY2014NO002200

PATIENT
  Age: 67 Year
  Sex: Female

DRUGS (1)
  1. VOLTAROL [Suspect]
     Dosage: 1 DF, QD
     Route: 048
     Dates: start: 20131219, end: 20131219

REACTIONS (4)
  - Cyanosis [Recovered/Resolved]
  - Erythema [Unknown]
  - Anaphylactoid reaction [Recovered/Resolved]
  - Dyspnoea [Recovered/Resolved]
